FAERS Safety Report 7798784-8 (Version None)
Quarter: 2011Q4

REPORT INFORMATION
  Report Type: 
  Country: None (occurrence: None)
  Receive Date: 20111006
  Receipt Date: 20110927
  Transmission Date: 20120403
  Serious: Yes (Other)
  Sender: FDA-Public Use
  Company Number: PHHY2011NL86301

PATIENT
  Sex: Female

DRUGS (4)
  1. 5-AMINOSALICYLIC ACID [Suspect]
     Indication: INFLAMMATORY BOWEL DISEASE
     Dosage: UNK UKN, UNK
  2. MERCAPTOPURINE [Suspect]
     Indication: INFLAMMATORY BOWEL DISEASE
     Dosage: 50 MG
  3. PREDNISONE [Suspect]
     Indication: INFLAMMATORY BOWEL DISEASE
     Dosage: UNK UKN, UNK
  4. AZATHIOPRINE [Suspect]
     Indication: INFLAMMATORY BOWEL DISEASE
     Dosage: 3 Y

REACTIONS (1)
  - MYCOSIS FUNGOIDES [None]
